FAERS Safety Report 23606973 (Version 2)
Quarter: 2024Q4

REPORT INFORMATION
  Report Type: Spontaneous
  Country: US (occurrence: US)
  Receive Date: 20240307
  Receipt Date: 20241215
  Transmission Date: 20250114
  Serious: No
  Sender: SUNOVION
  Company Number: US-MYOVANT SCIENCES GMBH-2023MYSCI1001040

PATIENT

DRUGS (3)
  1. ORGOVYX [Suspect]
     Active Substance: RELUGOLIX
     Indication: Prostate cancer
     Dosage: UNK MILLIGRAM
     Route: 048
     Dates: start: 20230607
  2. ORGOVYX [Suspect]
     Active Substance: RELUGOLIX
     Dosage: 120 MILLIGRAM, QD
     Route: 048
     Dates: start: 20230712, end: 20231027
  3. ORGOVYX [Suspect]
     Active Substance: RELUGOLIX
     Dosage: UNK, QD (TAKE 1 TABLET ONCE DAILY AROUND THE SAME TIME EACH DAY)
     Route: 048

REACTIONS (2)
  - Therapy interrupted [Not Recovered/Not Resolved]
  - Inappropriate schedule of product administration [Recovered/Resolved]

NARRATIVE: CASE EVENT DATE: 20230608
